FAERS Safety Report 14268523 (Version 1)
Quarter: 2017Q4

REPORT INFORMATION
  Report Type: Spontaneous
  Country: US (occurrence: US)
  Receive Date: 20171211
  Receipt Date: 20171211
  Transmission Date: 20180321
  Serious: Yes (Death, Other)
  Sender: FDA-Public Use
  Company Number: US-BRISTOL-MYERS SQUIBB COMPANY-BMS-2017-109484

PATIENT
  Age: 68 Year
  Sex: Female
  Weight: 51.7 kg

DRUGS (2)
  1. DROXIA [Suspect]
     Active Substance: HYDROXYUREA
     Indication: THROMBOCYTOSIS
     Route: 065
  2. DROXIA [Suspect]
     Active Substance: HYDROXYUREA
     Indication: IRON DEFICIENCY ANAEMIA
     Dosage: 500 MG, TID
     Route: 065
     Dates: start: 2016, end: 201709

REACTIONS (1)
  - Respiratory failure [Fatal]

NARRATIVE: CASE EVENT DATE: 20171105
